FAERS Safety Report 11878255 (Version 1)
Quarter: 2015Q4

REPORT INFORMATION
  Report Type: Spontaneous
  Country: US (occurrence: US)
  Receive Date: 20151230
  Receipt Date: 20151230
  Transmission Date: 20160305
  Serious: No
  Sender: FDA-Public Use
  Company Number: US-BAYER-2015-495133

PATIENT
  Sex: Male

DRUGS (1)
  1. ALEVE [Suspect]
     Active Substance: NAPROXEN SODIUM
     Indication: HEADACHE

REACTIONS (3)
  - Adverse reaction [None]
  - Vision blurred [None]
  - Dyspnoea [None]
